FAERS Safety Report 11475135 (Version 1)
Quarter: 2015Q3

REPORT INFORMATION
  Report Type: Report from Study
  Country: US (occurrence: US)
  Receive Date: 20150908
  Receipt Date: 20150908
  Transmission Date: 20151125
  Serious: Yes (Other)
  Sender: FDA-Public Use
  Company Number: US-009507513-1509USA003772

PATIENT

DRUGS (2)
  1. PLASMINOGEN (AS DRUG) [Suspect]
     Active Substance: PLASMINOGEN
     Indication: ISCHAEMIC STROKE
  2. INTEGRILIN [Suspect]
     Active Substance: EPTIFIBATIDE
     Indication: ISCHAEMIC STROKE
     Dosage: BOLUS 135 UG/KG AND 2-HOUR INFUSION AT 0.75 UG/KG PER MINUTE
     Route: 040

REACTIONS (1)
  - Cerebral haemorrhage [Unknown]
